FAERS Safety Report 9410533 (Version 1)
Quarter: 2013Q3

REPORT INFORMATION
  Report Type: Spontaneous
  Country: US (occurrence: None)
  Receive Date: 20130718
  Receipt Date: 20130718
  Transmission Date: 20140515
  Serious: Yes (Other)
  Sender: FDA-Public Use
  Company Number: None

PATIENT
  Age: 44 Year
  Sex: Male
  Weight: 83.92 kg

DRUGS (1)
  1. CEPHALEXIN [Suspect]
     Dosage: 7 DAY DOSE UNKNOWN
     Dates: start: 20130426, end: 20130501

REACTIONS (5)
  - Muscle twitching [None]
  - Fatigue [None]
  - Muscle spasms [None]
  - Pain [None]
  - Sleep disorder [None]
